FAERS Safety Report 18972711 (Version 1)
Quarter: 2021Q1

REPORT INFORMATION
  Report Type: Spontaneous
  Country: US (occurrence: US)
  Receive Date: 20210305
  Receipt Date: 20210305
  Transmission Date: 20210420
  Serious: Yes (Hospitalization)
  Sender: FDA-Public Use
  Company Number: US-SA-2021SA075509

PATIENT
  Sex: Female

DRUGS (9)
  1. DUPIXENT [Suspect]
     Active Substance: DUPILUMAB
     Indication: DERMATITIS ATOPIC
     Dosage: 300 MG, QOW
     Route: 058
     Dates: start: 2017
  2. TOPAMAX [Concomitant]
     Active Substance: TOPIRAMATE
     Dosage: 100 MG
  3. ALBUTEROL SULFATE HFA [Concomitant]
     Active Substance: ALBUTEROL SULFATE
  4. ACITRETIN. [Concomitant]
     Active Substance: ACITRETIN
     Dosage: 10 MG
  5. ADVIL [Concomitant]
     Active Substance: IBUPROFEN
     Dosage: 200 MG
  6. FLOVENT [Concomitant]
     Active Substance: FLUTICASONE PROPIONATE
  7. SILVER SULFADIAZINE. [Concomitant]
     Active Substance: SILVER SULFADIAZINE
  8. MELATONIN [Concomitant]
     Active Substance: MELATONIN
     Dosage: 3 MG
  9. TYLENOL [Concomitant]
     Active Substance: ACETAMINOPHEN
     Dosage: 325 MG

REACTIONS (2)
  - Rash [Unknown]
  - Dermatitis atopic [Unknown]
